FAERS Safety Report 5273162-4 (Version None)
Quarter: 2007Q1

REPORT INFORMATION
  Report Type: 
  Country: None (occurrence: None)
  Receive Date: 20070322
  Receipt Date: 20070313
  Transmission Date: 20070707
  Serious: Yes (Hospitalization)
  Sender: FDA-Public Use
  Company Number: FR-PFIZER INC-2007019382

PATIENT
  Age: 36 Year
  Sex: Male

DRUGS (5)
  1. AMLODIPINE [Suspect]
     Dates: start: 20070116, end: 20070118
  2. ASPEGIC 1000 [Suspect]
     Dosage: TEXT:1 DF-FREQ:FREQUENCY: DAILY
     Dates: start: 20061024, end: 20070118
  3. EUPRESSYL [Suspect]
     Dates: start: 20070116, end: 20070118
  4. MICARDIS [Suspect]
     Dosage: TEXT:1 DF-FREQ:FREQUENCY: DAILY
     Dates: start: 20061024, end: 20070118
  5. SECTRAL [Concomitant]

REACTIONS (2)
  - HYPOTENSION [None]
  - NEUTROPENIA [None]
